FAERS Safety Report 25883675 (Version 1)
Quarter: 2025Q4

REPORT INFORMATION
  Report Type: Spontaneous
  Country: CN (occurrence: CN)
  Receive Date: 20251006
  Receipt Date: 20251006
  Transmission Date: 20260119
  Serious: Yes (Disabling)
  Sender: ROCHE
  Company Number: CN-ROCHE-10000395905

PATIENT
  Age: 41 Year
  Sex: Male

DRUGS (6)
  1. GAZYVA [Suspect]
     Active Substance: OBINUTUZUMAB
     Indication: Follicular lymphoma stage III
     Route: 042
     Dates: start: 20250830, end: 20250916
  2. GAZYVA [Suspect]
     Active Substance: OBINUTUZUMAB
     Route: 042
     Dates: start: 20250906
  3. CYCLOPHOSPHAMIDE [Suspect]
     Active Substance: CYCLOPHOSPHAMIDE
     Indication: Follicular lymphoma stage III
     Dosage: DAY 1 TO DAY5
     Route: 065
     Dates: start: 20250831
  4. PIRARUBICIN [Suspect]
     Active Substance: PIRARUBICIN
     Indication: Follicular lymphoma stage III
     Dosage: DAY1 TO DAY5
     Route: 065
     Dates: start: 20250831
  5. VINDESINE [Suspect]
     Active Substance: VINDESINE
     Indication: Follicular lymphoma stage III
     Dosage: DAY1 TO DAY5
     Route: 065
     Dates: start: 20250831
  6. PREDNISONE [Suspect]
     Active Substance: PREDNISONE
     Indication: Follicular lymphoma stage III
     Dosage: DAY1 TO DAY5
     Route: 065
     Dates: start: 20250831

REACTIONS (1)
  - Myelosuppression [Recovering/Resolving]

NARRATIVE: CASE EVENT DATE: 20250912
